FAERS Safety Report 12464370 (Version 8)
Quarter: 2016Q3

REPORT INFORMATION
  Report Type: Report from Study
  Country: US (occurrence: US)
  Receive Date: 20160614
  Receipt Date: 20160912
  Transmission Date: 20161109
  Serious: Yes (Hospitalization, Other)
  Sender: FDA-Public Use
  Company Number: US-GILEAD-2016-0218673

PATIENT
  Age: 20 Year
  Sex: Male

DRUGS (5)
  1. ADEMPAS [Concomitant]
     Active Substance: RIOCIGUAT
  2. REMODULIN [Concomitant]
     Active Substance: TREPROSTINIL
  3. AMBRISENTAN [Suspect]
     Active Substance: AMBRISENTAN
     Indication: PRODUCT USED FOR UNKNOWN INDICATION
     Dosage: 10 MG, QD
     Route: 065
     Dates: start: 20091105
  4. ADCIRCA [Concomitant]
     Active Substance: TADALAFIL
  5. XARELTO [Concomitant]
     Active Substance: RIVAROXABAN

REACTIONS (9)
  - Cardiac failure congestive [Recovering/Resolving]
  - Cardiac failure [Unknown]
  - Haemorrhage [Unknown]
  - Endotracheal intubation [Unknown]
  - Lung transplant [Unknown]
  - Intra-abdominal fluid collection [Recovering/Resolving]
  - Constipation [Recovering/Resolving]
  - Lung disorder [Unknown]
  - Fluid retention [Unknown]
